FAERS Safety Report 9798240 (Version 2)
Quarter: 2014Q1

REPORT INFORMATION
  Report Type: Spontaneous
  Country: IT (occurrence: IT)
  Receive Date: 20140106
  Receipt Date: 20140213
  Transmission Date: 20141002
  Serious: Yes (Other)
  Sender: FDA-Public Use
  Company Number: IT-TEVA-454195ISR

PATIENT
  Age: 38 Year
  Sex: Male

DRUGS (6)
  1. GABAPENTIN [Suspect]
     Dosage: 100 MILLIGRAM DAILY;
     Route: 048
  2. RIVOTRIL 2.5 MG/ML [Suspect]
     Dosage: 20 GTT DAILY;
     Route: 048
  3. SEROQUEL 200 MG [Suspect]
     Indication: AFFECTIVE DISORDER
     Dosage: 2 DOSAGE FORMS DAILY;
     Route: 048
  4. LYRICA [Suspect]
     Dosage: 1 DOSAGE FORMS DAILY;
     Route: 048
  5. TEGRETOL [Suspect]
     Dosage: 2 DOSAGE FORMS DAILY;
     Route: 048
  6. TRITTICO [Suspect]
     Dosage: 1 DOSAGE FORMS DAILY;
     Route: 048

REACTIONS (4)
  - Loss of consciousness [Unknown]
  - Drug abuse [Unknown]
  - Sopor [Unknown]
  - Intentional self-injury [Unknown]
